FAERS Safety Report 12925745 (Version 2)
Quarter: 2017Q4

REPORT INFORMATION
  Report Type: Spontaneous
  Country: US (occurrence: US)
  Receive Date: 20161108
  Receipt Date: 20171124
  Transmission Date: 20180320
  Serious: Yes (Other)
  Sender: FDA-Public Use
  Company Number: US-SA-2016SA185309

PATIENT
  Age: 67 Year
  Sex: Female

DRUGS (4)
  1. ALIROCUMAB PREFILLED PEN [Suspect]
     Active Substance: ALIROCUMAB
     Indication: TYPE IIA HYPERLIPIDAEMIA
     Dates: start: 20160926
  2. PRALUENT [Suspect]
     Active Substance: ALIROCUMAB
     Indication: TYPE IIA HYPERLIPIDAEMIA
     Route: 058
     Dates: start: 20160926
  3. PRALUENT [Suspect]
     Active Substance: ALIROCUMAB
     Indication: TYPE IIA HYPERLIPIDAEMIA
     Route: 058
     Dates: start: 20160926
  4. ALIROCUMAB PREFILLED PEN [Suspect]
     Active Substance: ALIROCUMAB
     Indication: TYPE IIA HYPERLIPIDAEMIA
     Dates: start: 20160926

REACTIONS (12)
  - Fatigue [Recovering/Resolving]
  - Alopecia [Recovering/Resolving]
  - Pruritus [Recovered/Resolved]
  - Injection site pain [Unknown]
  - Injection site haemorrhage [Recovered/Resolved]
  - Hypothyroidism [Recovering/Resolving]
  - Dry skin [Recovering/Resolving]
  - Device issue [Unknown]
  - Erosive oesophagitis [Unknown]
  - Depression [Recovering/Resolving]
  - Gastrooesophageal reflux disease [Unknown]
  - Rash [Unknown]

NARRATIVE: CASE EVENT DATE: 20161006
